FAERS Safety Report 19891760 (Version 4)
Quarter: 2021Q4

REPORT INFORMATION
  Report Type: Spontaneous
  Country: US (occurrence: US)
  Receive Date: 20210928
  Receipt Date: 20211028
  Transmission Date: 20220303
  Serious: Yes (Hospitalization, Other)
  Sender: FDA-Public Use
  Company Number: US-PFIZER INC-202101218914

PATIENT
  Age: 58 Year
  Sex: Female

DRUGS (1)
  1. WATER [Suspect]
     Active Substance: WATER
     Dosage: UNK

REACTIONS (5)
  - Illness [Unknown]
  - Poor quality product administered [Unknown]
  - Recalled product administered [Unknown]
  - Infection [Unknown]
  - Sepsis [Unknown]
